FAERS Safety Report 19603062 (Version 2)
Quarter: 2021Q3

REPORT INFORMATION
  Report Type: Report from Study
  Country: US (occurrence: US)
  Receive Date: 20210723
  Receipt Date: 20210929
  Transmission Date: 20211014
  Serious: Yes (Hospitalization, Other)
  Sender: FDA-Public Use
  Company Number: US-TAKEDA-US202030773

PATIENT
  Age: 62 Year
  Sex: Female

DRUGS (19)
  1. CEFEPIME [Concomitant]
     Active Substance: CEFEPIME HYDROCHLORIDE
     Indication: BACTERAEMIA
     Dosage: 2 GRAM, BID
     Route: 042
     Dates: start: 20210207, end: 20210217
  2. HYDROMORPHONE [Concomitant]
     Active Substance: HYDROMORPHONE
     Indication: PAIN
     Dosage: 0.50 MILLIGRAM, Q4HR
     Route: 042
     Dates: start: 20201026, end: 20201028
  3. VANCOMYCIN [Concomitant]
     Active Substance: VANCOMYCIN
     Indication: VASCULAR DEVICE INFECTION
     Dosage: 750 MILLIGRAM
     Route: 042
     Dates: start: 20210116, end: 20210220
  4. TEDUGLUTIDE [Suspect]
     Active Substance: TEDUGLUTIDE
     Dosage: 1.25 MILLIGRAM (0.02 MILLIGRAM/KILOGRAM DAILY DOSE, 7 DOSES PER WEEK), OTHER
     Route: 065
     Dates: start: 20160602, end: 20160620
  5. TEDUGLUTIDE [Suspect]
     Active Substance: TEDUGLUTIDE
     Dosage: 1.25 MILLIGRAM (0.02 MILLIGRAM/KILOGRAM DAILY DOSE, 7 DOSES PER WEEK), OTHER
     Route: 065
     Dates: start: 20160602, end: 20160620
  6. TEDUGLUTIDE [Suspect]
     Active Substance: TEDUGLUTIDE
     Indication: SHORT-BOWEL SYNDROME
     Dosage: 2.5 MILLIGRAM (0.05 MILLIGRAM/KILOGRAM DAILY DOSE, 7 DOSES PER WEEK), OTHER
     Route: 065
     Dates: start: 20160427, end: 20160502
  7. LOVENOX [Concomitant]
     Active Substance: ENOXAPARIN SODIUM
     Indication: THROMBOSIS PROPHYLAXIS
     Dosage: 40 MILLIGRAM, QD
     Route: 058
     Dates: start: 201408
  8. TEDUGLUTIDE [Suspect]
     Active Substance: TEDUGLUTIDE
     Indication: SHORT-BOWEL SYNDROME
     Dosage: 2.5 MILLIGRAM (0.05 MILLIGRAM/KILOGRAM DAILY DOSE, 7 DOSES PER WEEK), OTHER
     Route: 065
     Dates: start: 20160427, end: 20160502
  9. ACETAMINOPHEN. [Concomitant]
     Active Substance: ACETAMINOPHEN
     Indication: PAIN
     Dosage: 100 MILLILITER, ONE TIME ONLY
     Route: 042
     Dates: start: 20200515, end: 20200517
  10. ACETAMINOPHEN. [Concomitant]
     Active Substance: ACETAMINOPHEN
     Indication: PYREXIA
  11. AMLODIPINE [Concomitant]
     Active Substance: AMLODIPINE BESYLATE
     Indication: PRODUCT USED FOR UNKNOWN INDICATION
     Dosage: UNK
     Route: 065
  12. EXCEDRIN [Concomitant]
     Active Substance: ACETAMINOPHEN\ASPIRIN\CAFFEINE
     Indication: HEADACHE
     Dosage: 1 DOSAGE FORM, 6 TIMES A DAY
     Route: 048
     Dates: start: 20210203, end: 20210205
  13. TEDUGLUTIDE [Suspect]
     Active Substance: TEDUGLUTIDE
     Indication: SHORT-BOWEL SYNDROME
     Dosage: 2.5 MILLIGRAM (0.05 MILLIGRAM/KILOGRAM DAILY DOSE, 7 DOSES PER WEEK), OTHER
     Route: 065
     Dates: start: 20160427, end: 20160502
  14. TEDUGLUTIDE [Suspect]
     Active Substance: TEDUGLUTIDE
     Dosage: 1.25 MILLIGRAM (0.02 MILLIGRAM/KILOGRAM DAILY DOSE, 7 DOSES PER WEEK), OTHER
     Route: 065
     Dates: start: 20160602, end: 20160620
  15. ZYRTEC [Concomitant]
     Active Substance: CETIRIZINE HYDROCHLORIDE
     Indication: SEASONAL ALLERGY
     Dosage: 10 MILLIGRAM, QD
     Route: 048
     Dates: start: 20190507
  16. TEDUGLUTIDE [Suspect]
     Active Substance: TEDUGLUTIDE
     Indication: SHORT-BOWEL SYNDROME
     Dosage: 2.5 MILLIGRAM (0.05 MILLIGRAM/KILOGRAM DAILY DOSE, 7 DOSES PER WEEK), OTHER
     Route: 065
     Dates: start: 20160427, end: 20160502
  17. TEDUGLUTIDE [Suspect]
     Active Substance: TEDUGLUTIDE
     Dosage: 1.25 MILLIGRAM (0.02 MILLIGRAM/KILOGRAM DAILY DOSE, 7 DOSES PER WEEK), OTHER
     Route: 065
     Dates: start: 20160602, end: 20160620
  18. HEPARIN [Concomitant]
     Active Substance: HEPARIN SODIUM
     Indication: ANTICOAGULANT THERAPY
     Dosage: 50 UNITS, BID
     Route: 058
     Dates: start: 20200514, end: 20200517
  19. LOVENOX [Concomitant]
     Active Substance: ENOXAPARIN SODIUM
     Dosage: 40 MILLIGRAM, QD
     Route: 058
     Dates: start: 20210202, end: 20210205

REACTIONS (1)
  - Small intestinal obstruction [Recovered/Resolved]

NARRATIVE: CASE EVENT DATE: 20200818
